FAERS Safety Report 22266655 (Version 1)
Quarter: 2023Q2

REPORT INFORMATION
  Report Type: Spontaneous
  Country: JP (occurrence: JP)
  Receive Date: 20230428
  Receipt Date: 20230428
  Transmission Date: 20230722
  Serious: Yes (Hospitalization, Other)
  Sender: FDA-Public Use
  Company Number: JP-ferring-EVA202300434FERRINGPH

PATIENT

DRUGS (2)
  1. DEGARELIX [Suspect]
     Active Substance: DEGARELIX
     Indication: Prostate cancer
     Dosage: 480 MG, EVERY 3RD MONTH
     Route: 065
     Dates: start: 202301
  2. DEGARELIX [Suspect]
     Active Substance: DEGARELIX
     Route: 065
     Dates: start: 202206

REACTIONS (2)
  - Cerebral infarction [Unknown]
  - Dementia [Unknown]
